FAERS Safety Report 5884344-2 (Version None)
Quarter: 2008Q3

REPORT INFORMATION
  Report Type: 
  Country: None (occurrence: None)
  Receive Date: 20080915
  Receipt Date: 20080904
  Transmission Date: 20090109
  Serious: Yes (Other)
  Sender: FDA-Public Use
  Company Number: ES-PFIZER INC-2008073917

PATIENT
  Age: 46 Year
  Sex: Female

DRUGS (4)
  1. AROMASIL [Suspect]
     Indication: BREAST CANCER
     Route: 048
     Dates: start: 20070801, end: 20080601
  2. ALDACTONE [Concomitant]
     Dates: start: 20070101
  3. FLATORIL [Concomitant]
     Dates: start: 20070101
  4. KONAKION [Concomitant]
     Dates: start: 20070101

REACTIONS (1)
  - HEPATIC CIRRHOSIS [None]
